FAERS Safety Report 24744768 (Version 1)
Quarter: 2024Q4

REPORT INFORMATION
  Report Type: Spontaneous
  Country: US (occurrence: US)
  Receive Date: 20241217
  Receipt Date: 20241217
  Transmission Date: 20250115
  Serious: No
  Sender: BRISTOL-MYERS SQUIBB COMPANY
  Company Number: US-BRISTOL-MYERS SQUIBB COMPANY-2024-195051

PATIENT

DRUGS (2)
  1. ORENCIA [Suspect]
     Active Substance: ABATACEPT
     Indication: Product used for unknown indication
     Dosage: DOSE : 2 VIALS OF 250MG EACH
  2. ORENCIA [Suspect]
     Active Substance: ABATACEPT
     Dosage: DOSE : 2 VIALS OF 250MG EACH;     FREQ : UNAVAILABLE, NO PATIENT INVOLVED

REACTIONS (2)
  - Product packaging issue [Unknown]
  - Product storage error [Unknown]
